FAERS Safety Report 7660414-3 (Version None)
Quarter: 2011Q3

REPORT INFORMATION
  Report Type: 
  Country: None (occurrence: None)
  Receive Date: 20110805
  Receipt Date: 20110722
  Transmission Date: 20111222
  Serious: Yes (Other)
  Sender: FDA-Public Use
  Company Number: US-WATSON-2011-11433

PATIENT
  Age: 40 Year
  Sex: Female
  Weight: 0.85 kg

DRUGS (2)
  1. DILANTIN [Suspect]
     Indication: MATERNAL EXPOSURE DURING PREGNANCY
     Dosage: 100 MG TWO TIMES A DAY
     Route: 064
     Dates: start: 19700101
  2. PRIMIDONE [Suspect]
     Indication: MATERNAL EXPOSURE DURING PREGNANCY
     Dosage: 250 MG TWO TIMES A DAY
     Route: 064
     Dates: start: 19700101

REACTIONS (4)
  - MATERNAL EXPOSURE DURING PREGNANCY [None]
  - MATERNAL DRUGS AFFECTING FOETUS [None]
  - SMALL FOR DATES BABY [None]
  - PREMATURE BABY [None]
